FAERS Safety Report 15280105 (Version 1)
Quarter: 2018Q3

REPORT INFORMATION
  Report Type: Report from Study
  Country: US (occurrence: US)
  Receive Date: 20180815
  Receipt Date: 20180815
  Transmission Date: 20181010
  Serious: Yes (Hospitalization)
  Sender: FDA-Public Use
  Company Number: US-EISAI MEDICAL RESEARCH-EC-2017-025287

PATIENT
  Sex: Male

DRUGS (9)
  1. LENVIMA [Suspect]
     Active Substance: LENVATINIB
     Indication: THYROID CANCER
     Route: 048
     Dates: start: 20170215, end: 201703
  2. LENVIMA [Suspect]
     Active Substance: LENVATINIB
     Dosage: 3 TIMES A WEEK.
     Route: 048
     Dates: start: 201707, end: 2017
  3. LENVIMA [Suspect]
     Active Substance: LENVATINIB
     Route: 048
     Dates: start: 20170307, end: 201703
  4. LENVIMA [Suspect]
     Active Substance: LENVATINIB
     Route: 048
     Dates: start: 201703, end: 20170726
  5. LENVIMA [Suspect]
     Active Substance: LENVATINIB
     Dosage: 5 TIMES A WEEK.
     Route: 048
     Dates: start: 2017, end: 2017
  6. LENVIMA [Suspect]
     Active Substance: LENVATINIB
     Route: 048
  7. HYDROCODONE [Concomitant]
     Active Substance: HYDROCODONE
  8. LENVIMA [Suspect]
     Active Substance: LENVATINIB
     Dosage: 5 DAYS OUT OF THE WEEK
     Route: 048
     Dates: start: 2017
  9. ALEVE [Suspect]
     Active Substance: NAPROXEN SODIUM
     Indication: BACK PAIN
     Dosage: MULTIPLE DOSES
     Route: 048
     Dates: start: 2018

REACTIONS (13)
  - Gastric ulcer haemorrhage [Not Recovered/Not Resolved]
  - Hypotension [Recovered/Resolved]
  - Malaise [Recovered/Resolved]
  - Feeding disorder [Recovered/Resolved]
  - Vomiting [Recovered/Resolved]
  - Fatigue [Not Recovered/Not Resolved]
  - Decreased appetite [Not Recovered/Not Resolved]
  - Dizziness [Recovering/Resolving]
  - Seasonal allergy [Recovered/Resolved]
  - Rash [Recovered/Resolved]
  - Blood pressure increased [Recovering/Resolving]
  - Dysphonia [Recovered/Resolved]
  - Oral pain [Recovered/Resolved]

NARRATIVE: CASE EVENT DATE: 2017
